FAERS Safety Report 20834233 (Version 1)
Quarter: 2022Q2

REPORT INFORMATION
  Report Type: Spontaneous
  Country: US (occurrence: None)
  Receive Date: 20220516
  Receipt Date: 20220516
  Transmission Date: 20220720
  Serious: No
  Sender: FDA-Public Use
  Company Number: 2022A123837

PATIENT
  Age: 82 Year
  Sex: Male
  Weight: 109.8 kg

DRUGS (2)
  1. BYDUREON BCISE [Suspect]
     Active Substance: EXENATIDE
     Indication: Type 2 diabetes mellitus
     Route: 058
     Dates: start: 2020
  2. PRILOSEC [Suspect]
     Active Substance: OMEPRAZOLE MAGNESIUM
     Route: 048
     Dates: start: 20210301

REACTIONS (9)
  - COVID-19 [Unknown]
  - Sleep apnoea syndrome [Unknown]
  - Hyperlipidaemia [Unknown]
  - Myalgia [Unknown]
  - Arthralgia [Unknown]
  - Incorrect dose administered by device [Unknown]
  - Device use issue [Unknown]
  - Needle issue [Unknown]
  - Device leakage [Unknown]
